FAERS Safety Report 8770503 (Version 2)
Quarter: 2012Q4

REPORT INFORMATION
  Report Type: 
  Country: US (occurrence: US)
  Receive Date: 20120906
  Receipt Date: 20121002
  Transmission Date: 20130627
  Serious: Yes (Other)
  Sender: FDA-Public Use
  Company Number: US-BAYER-2012-091336

PATIENT
  Age: 36 Year
  Sex: Female
  Weight: 84.35 kg

DRUGS (2)
  1. MIRENA [Suspect]
     Indication: MENORRHAGIA
     Dosage: 20 mcg/24hr, CONT
     Route: 015
     Dates: start: 2007, end: 201202
  2. MIRENA [Suspect]
     Indication: CONTRACEPTION
     Dosage: 20 mcg/24hr, CONT
     Route: 015
     Dates: start: 20120423

REACTIONS (6)
  - Medical device discomfort [None]
  - Abdominal pain [Recovered/Resolved]
  - Post procedural haemorrhage [None]
  - Genital haemorrhage [None]
  - Device expulsion [None]
  - Abdominal pain lower [Recovering/Resolving]
